FAERS Safety Report 10901372 (Version 1)
Quarter: 2015Q1

REPORT INFORMATION
  Report Type: Spontaneous
  Country: US (occurrence: US)
  Receive Date: 20150310
  Receipt Date: 20150310
  Transmission Date: 20150721
  Serious: No
  Sender: FDA-Public Use
  Company Number: US-ENDO PHARMACEUTICALS INC.-OXYC20140006

PATIENT
  Sex: Female

DRUGS (1)
  1. OXYCODONE HCL 5MG [Suspect]
     Active Substance: OXYCODONE
     Indication: BREAKTHROUGH PAIN
     Route: 048
     Dates: start: 2013

REACTIONS (1)
  - Drug effect decreased [Not Recovered/Not Resolved]
